FAERS Safety Report 17826438 (Version 1)
Quarter: 2020Q2

REPORT INFORMATION
  Report Type: Spontaneous
  Country: US (occurrence: US)
  Receive Date: 20200526
  Receipt Date: 20200526
  Transmission Date: 20200714
  Serious: Yes (Other)
  Sender: FDA-Public Use
  Company Number: US-NOVOPROD-729133

PATIENT
  Age: 59 Year
  Sex: Male

DRUGS (3)
  1. METFORMIN [Concomitant]
     Active Substance: METFORMIN HYDROCHLORIDE
     Indication: TYPE 2 DIABETES MELLITUS
  2. FARXIGA [Concomitant]
     Active Substance: DAPAGLIFLOZIN PROPANEDIOL
     Indication: TYPE 2 DIABETES MELLITUS
  3. VICTOZA [Suspect]
     Active Substance: LIRAGLUTIDE
     Indication: TYPE 2 DIABETES MELLITUS
     Dosage: 1.8 MG, QD
     Route: 058
     Dates: start: 2018

REACTIONS (11)
  - Blood glucose increased [Unknown]
  - Atrophy [Unknown]
  - Anxiety [Unknown]
  - Insomnia [Unknown]
  - Mood altered [Unknown]
  - Dysphonia [Unknown]
  - Stress [Unknown]
  - Skin lesion [Not Recovered/Not Resolved]
  - Contrast media reaction [Unknown]
  - Chest discomfort [Unknown]
  - Feeling jittery [Unknown]

NARRATIVE: CASE EVENT DATE: 201911
